APPROVED DRUG PRODUCT: AUVI-Q
Active Ingredient: EPINEPHRINE
Strength: EQ 0.1MG/DELIVERY
Dosage Form/Route: SOLUTION;INTRAMUSCULAR, SUBCUTANEOUS
Application: N201739 | Product #003
Applicant: KALEO INC
Approved: Nov 17, 2017 | RLD: Yes | RS: No | Type: RX

PATENTS:
Patent 10688244 | Expires: Dec 21, 2037
Patent 10842938 | Expires: Dec 21, 2037
Patent 11771830 | Expires: Dec 21, 2037
Patent 8231573 | Expires: Nov 25, 2028
Patent 8021344 | Expires: Nov 2, 2029
Patent 8206360 | Expires: Feb 27, 2027
Patent 8226610 | Expires: Apr 10, 2029
Patent 7947017 | Expires: Mar 12, 2028
Patent 11590286 | Expires: Dec 12, 2026